FAERS Safety Report 22288958 (Version 1)
Quarter: 2023Q2

REPORT INFORMATION
  Report Type: Spontaneous
  Country: GB (occurrence: GB)
  Receive Date: 20230505
  Receipt Date: 20230505
  Transmission Date: 20230722
  Serious: Yes (Other)
  Sender: FDA-Public Use
  Company Number: None

PATIENT

DRUGS (8)
  1. LETROZOLE [Suspect]
     Active Substance: LETROZOLE
     Indication: Product used for unknown indication
     Dosage: 2.5 MILLIGRAM DAILY; STATES THIS WAS STOPPED APPROX. 2 WEEKS AGO, MAY BE BEING CHANGED,
  2. ACETYLCYSTEINE [Concomitant]
     Active Substance: ACETYLCYSTEINE
     Indication: Product used for unknown indication
     Dosage: 1 DOSAGE FORMS DAILY; NACSYS  - REVIEW IN 1/12 - STOP IN NON EFFECTIVE 30 TABLET,(IPS SPECIALS)
  3. ALENDRONIC ACID [Concomitant]
     Active Substance: ALENDRONIC ACID
     Indication: Product used for unknown indication
     Dosage: 1 DOSAGE FORMS DAILY; THE SAME DAY EACH WEEK - TUESDAY,
  4. AMOXICILLIN [Concomitant]
     Active Substance: AMOXICILLIN
     Indication: Product used for unknown indication
     Dosage: 3 DOSAGE FORMS DAILY; RESCUE PACK 15 CAPSULE - COMPLETE
  5. CARBOCYSTEINE [Concomitant]
     Active Substance: CARBOCYSTEINE
     Indication: Product used for unknown indication
     Dosage: 1-2 UPTO TDS PRN TO ALLOW EASIER COUGHING OF MUCUS - REVIEW IN 4 WEEKS WITH PRACTICE PHARMACIST 120
  6. LEVOTHYROXINE [Concomitant]
     Active Substance: LEVOTHYROXINE
     Indication: Product used for unknown indication
  7. PREDNISOLONE [Concomitant]
     Active Substance: PREDNISOLONE
     Indication: Product used for unknown indication
     Dosage: 6 DOSAGE FORMS DAILY;  RESCUE PACK 30 TABLET - COMPLETE
  8. ALBUTEROL [Concomitant]
     Active Substance: ALBUTEROL
     Indication: Product used for unknown indication
     Dosage: INHALER (MYLAN LTD)
     Route: 055

REACTIONS (1)
  - Hip fracture [Unknown]
